FAERS Safety Report 24249061 (Version 1)
Quarter: 2024Q3

REPORT INFORMATION
  Report Type: Spontaneous
  Country: CN (occurrence: CN)
  Receive Date: 20240826
  Receipt Date: 20240826
  Transmission Date: 20241017
  Serious: Yes (Life-Threatening, Other)
  Sender: BAYER
  Company Number: CN-BAYER-2024A122153

PATIENT
  Age: 78 Year
  Sex: Male
  Weight: 76 kg

DRUGS (1)
  1. ULTRAVIST [Suspect]
     Active Substance: IOPROMIDE
     Indication: Angiocardiogram
     Dosage: 100 ML, ONCE
     Route: 042
     Dates: start: 20240618, end: 20240618

REACTIONS (10)
  - Anaphylactic shock [Recovering/Resolving]
  - Syncope [Recovering/Resolving]
  - Electrocardiogram ST segment elevation [Recovering/Resolving]
  - Blood pressure systolic decreased [Recovered/Resolved]
  - Heart rate increased [None]
  - Erythema [Recovering/Resolving]
  - Hyperhidrosis [Recovering/Resolving]
  - Myoglobin blood increased [None]
  - Blood pH decreased [None]
  - PO2 increased [None]

NARRATIVE: CASE EVENT DATE: 20240618
